FAERS Safety Report 25558460 (Version 1)
Quarter: 2025Q3

REPORT INFORMATION
  Report Type: Spontaneous
  Country: US (occurrence: US)
  Receive Date: 20250715
  Receipt Date: 20250715
  Transmission Date: 20251020
  Serious: No
  Sender: NOVO NORDISK
  Company Number: US-NOVOPROD-1434873

PATIENT
  Age: 70 Year
  Sex: Female
  Weight: 117.91 kg

DRUGS (3)
  1. OZEMPIC [Suspect]
     Active Substance: SEMAGLUTIDE
     Indication: Glucose tolerance impaired
     Dosage: 0.25 MG, QW
     Dates: start: 202310, end: 202410
  2. OZEMPIC [Suspect]
     Active Substance: SEMAGLUTIDE
     Dates: start: 2025
  3. OZEMPIC [Suspect]
     Active Substance: SEMAGLUTIDE
     Dates: start: 202311

REACTIONS (9)
  - Lethargy [Recovered/Resolved]
  - Illness [Recovered/Resolved]
  - Blood glucose decreased [Recovered/Resolved]
  - Feeding disorder [Recovered/Resolved]
  - Weight increased [Unknown]
  - Ageusia [Recovered/Resolved]
  - Hypersomnia [Recovered/Resolved]
  - Constipation [Recovered/Resolved]
  - Product use in unapproved indication [Unknown]

NARRATIVE: CASE EVENT DATE: 20231101
